FAERS Safety Report 9892966 (Version 3)
Quarter: 2014Q1

REPORT INFORMATION
  Report Type: Spontaneous
  Country: DE (occurrence: DE)
  Receive Date: 20140213
  Receipt Date: 20140220
  Transmission Date: 20141002
  Serious: Yes (Other)
  Sender: FDA-Public Use
  Company Number: DE-JNJFOC-2011002653

PATIENT
  Sex: 0

DRUGS (2)
  1. CETIRIZINE HYDROCHLORIDE [Suspect]
     Route: 064
  2. CETIRIZINE HYDROCHLORIDE [Suspect]
     Indication: PRODUCT USED FOR UNKNOWN INDICATION
     Dosage: DAILY DOSE TEXT: 5-20 MG/DAY IN THE FIRST TRIMESTER
     Route: 064

REACTIONS (2)
  - Foot deformity [Unknown]
  - Foetal exposure during pregnancy [Recovered/Resolved]
